FAERS Safety Report 15186809 (Version 2)
Quarter: 2019Q1

REPORT INFORMATION
  Report Type: Report from Study
  Country: US (occurrence: US)
  Receive Date: 20180723
  Receipt Date: 20190130
  Transmission Date: 20190417
  Serious: No
  Sender: FDA-Public Use
  Company Number: US-EXELIXIS-CABO-18012496

PATIENT
  Sex: Male

DRUGS (15)
  1. TESSALON [Concomitant]
     Active Substance: BENZONATATE
  2. FUROSEMIDE. [Concomitant]
     Active Substance: FUROSEMIDE
  3. DURAGESIC [Concomitant]
     Active Substance: FENTANYL
  4. CALCIUM +VIT D [Concomitant]
     Active Substance: CALCIUM\VITAMIN D
  5. ZOLPIDEM TARTATE [Concomitant]
     Active Substance: ZOLPIDEM TARTRATE
  6. CABOMETYX [Suspect]
     Active Substance: CABOZANTINIB S-MALATE
     Indication: RENAL CANCER
     Dosage: 60 MG, QD
     Route: 048
     Dates: start: 20180118
  7. FLEXERIL [Concomitant]
     Active Substance: CYCLOBENZAPRINE HYDROCHLORIDE
  8. CITALOPRAM [Concomitant]
     Active Substance: CITALOPRAM HYDROBROMIDE
  9. KLOR-CON [Concomitant]
     Active Substance: POTASSIUM CHLORIDE
  10. VALTREX [Concomitant]
     Active Substance: VALACYCLOVIR HYDROCHLORIDE
  11. FLOVENT [Concomitant]
     Active Substance: FLUTICASONE PROPIONATE
  12. OXYCODONE [Concomitant]
     Active Substance: OXYCODONE
  13. ALBUTEROL. [Concomitant]
     Active Substance: ALBUTEROL
  14. ALDACTONE [Concomitant]
     Active Substance: SPIRONOLACTONE
  15. VALIUM [Concomitant]
     Active Substance: DIAZEPAM

REACTIONS (1)
  - Hepatic function abnormal [Unknown]
